FAERS Safety Report 24147068 (Version 1)
Quarter: 2024Q3

REPORT INFORMATION
  Report Type: Spontaneous
  Country: US (occurrence: US)
  Receive Date: 20240729
  Receipt Date: 20240729
  Transmission Date: 20241016
  Serious: Yes (Other)
  Sender: MYLAN
  Company Number: US-MYLANLABS-2024M1068854

PATIENT
  Age: 35 Year
  Sex: Male

DRUGS (10)
  1. PREDNISONE [Suspect]
     Active Substance: PREDNISONE
     Indication: Chronic graft versus host disease
     Dosage: UNK (RECEIVED LONG TERM TREATMENT, INITIAL AND TAPERED DOSE UNKNOWN)
     Route: 065
  2. MYCOPHENOLATE MOFETIL [Suspect]
     Active Substance: MYCOPHENOLATE MOFETIL
     Indication: Chronic graft versus host disease
     Dosage: UNK (RECEIVED LONG TERM TREATMENT, INITIAL AND TAPERED DOSE UNKNOWN)
     Route: 065
  3. PEMBROLIZUMAB [Suspect]
     Active Substance: PEMBROLIZUMAB
     Indication: Metastatic malignant melanoma
     Dosage: UNK (RECEIVED SINGLE INFUSION)
     Route: 065
     Dates: start: 202002
  4. HYALURONIDASE [Suspect]
     Active Substance: HYALURONIDASE
     Indication: Chronic graft versus host disease in skin
     Dosage: 480 INTERNATIONAL UNIT
     Route: 026
     Dates: start: 202002
  5. HYALURONIDASE [Suspect]
     Active Substance: HYALURONIDASE
     Dosage: 960 INTERNATIONAL UNIT
     Route: 026
     Dates: start: 202003
  6. HYALURONIDASE [Suspect]
     Active Substance: HYALURONIDASE
     Dosage: 960 INTERNATIONAL UNIT (RECEIVED 2 INJECTIONS)
     Route: 026
     Dates: start: 202006
  7. HYALURONIDASE [Suspect]
     Active Substance: HYALURONIDASE
     Dosage: 960 INTERNATIONAL UNIT
     Route: 026
     Dates: start: 202007
  8. SIROLIMUS [Concomitant]
     Active Substance: SIROLIMUS
     Indication: Chronic graft versus host disease
     Dosage: UNK
     Route: 065
  9. DABRAFENIB [Concomitant]
     Active Substance: DABRAFENIB
     Indication: Metastatic malignant melanoma
     Dosage: UNK
     Route: 065
  10. TRAMETINIB [Concomitant]
     Active Substance: TRAMETINIB
     Indication: Metastatic malignant melanoma
     Dosage: UNK
     Route: 065

REACTIONS (2)
  - Rebound effect [Recovering/Resolving]
  - Chronic graft versus host disease in skin [Recovering/Resolving]
